FAERS Safety Report 9979503 (Version 2)
Quarter: 2014Q1

REPORT INFORMATION
  Report Type: Report from Study
  Country: US (occurrence: US)
  Receive Date: 20140306
  Receipt Date: 20140306
  Transmission Date: 20141002
  Serious: No
  Sender: FDA-Public Use
  Company Number: US-ABBVIE-13P-163-1124685-00

PATIENT
  Sex: Female

DRUGS (7)
  1. HUMIRA [Suspect]
     Indication: RHEUMATOID ARTHRITIS
     Route: 058
     Dates: start: 2011
  2. HUMIRA [Suspect]
     Dates: start: 20130802
  3. HYZAAR [Concomitant]
     Indication: PRODUCT USED FOR UNKNOWN INDICATION
  4. VALACYCLOVIR [Concomitant]
     Indication: PRODUCT USED FOR UNKNOWN INDICATION
  5. LOSARTIN [Concomitant]
     Indication: PRODUCT USED FOR UNKNOWN INDICATION
  6. CENTRUM SILVER [Concomitant]
     Indication: PRODUCT USED FOR UNKNOWN INDICATION
  7. VESICARE [Concomitant]
     Indication: PRODUCT USED FOR UNKNOWN INDICATION

REACTIONS (6)
  - Streptococcal infection [Recovered/Resolved]
  - Staphylococcal infection [Recovered/Resolved]
  - Injection site pain [Not Recovered/Not Resolved]
  - Sinusitis [Unknown]
  - Urinary tract infection [Unknown]
  - Ear infection [Recovered/Resolved]
